FAERS Safety Report 20847026 (Version 1)
Quarter: 2022Q2

REPORT INFORMATION
  Report Type: Other
  Country: US (occurrence: None)
  Receive Date: 20220519
  Receipt Date: 20220519
  Transmission Date: 20220721
  Serious: Yes (Other)
  Sender: FDA-Public Use
  Company Number: US-ROCHE-3092560

PATIENT
  Age: 57 Year
  Sex: Female

DRUGS (5)
  1. OCREVUS [Suspect]
     Active Substance: OCRELIZUMAB
     Indication: Multiple sclerosis
     Dosage: 300 MG ON DAY 1 AND DAY 15 THEN 600 MG EVERY 6 MONTHS
     Route: 042
     Dates: end: 202106
  2. BETASERON [Concomitant]
     Active Substance: INTERFERON BETA-1B
  3. REBIF [Concomitant]
     Active Substance: INTERFERON BETA-1A
  4. AUBAGIO [Concomitant]
     Active Substance: TERIFLUNOMIDE
  5. COPAXONE [Concomitant]
     Active Substance: GLATIRAMER ACETATE

REACTIONS (1)
  - Urinary tract infection [Recovered/Resolved]

NARRATIVE: CASE EVENT DATE: 20210701
